FAERS Safety Report 7349263-3 (Version None)
Quarter: 2011Q1

REPORT INFORMATION
  Report Type: 
  Country: None (occurrence: None)
  Receive Date: 20110225
  Receipt Date: 20101027
  Transmission Date: 20110831
  Serious: Yes (Other)
  Sender: FDA-Public Use
  Company Number: 316031

PATIENT
  Age: 67 Year
  Sex: Male
  Weight: 102 kg

DRUGS (10)
  1. KEPPRA [Concomitant]
  2. ASPIRIN [Concomitant]
  3. VICTOZA [Suspect]
     Indication: TYPE 2 DIABETES MELLITUS
     Dosage: 0.6 MG, QD, SUBCUTANEOUS
     Route: 058
     Dates: start: 20100901, end: 20100920
  4. GLIMIPIRIDE (GLIMEPIRIDE) [Concomitant]
  5. LIPITOR [Concomitant]
  6. PLAVIX [Concomitant]
  7. JANUVIA [Concomitant]
  8. NIASPAN [Concomitant]
  9. LISINOPRIL [Concomitant]
  10. PREVACID [Concomitant]

REACTIONS (1)
  - PANCREATITIS ACUTE [None]
